FAERS Safety Report 22064309 (Version 2)
Quarter: 2023Q2

REPORT INFORMATION
  Report Type: Spontaneous
  Country: US (occurrence: US)
  Receive Date: 20230306
  Receipt Date: 20230501
  Transmission Date: 20230722
  Serious: No
  Sender: FDA-Public Use
  Company Number: US-PFIZER INC-2020259154

PATIENT
  Age: 55 Year
  Sex: Female
  Weight: 53.07 kg

DRUGS (3)
  1. ESTRING [Suspect]
     Active Substance: ESTRADIOL
     Indication: Menopause
     Dosage: 2 MG, EVERY 3 MONTHS (2MG RING INSERTED VAGINALLY EVERY 3 MONTHS)
     Route: 067
  2. ESTRING [Suspect]
     Active Substance: ESTRADIOL
     Indication: Vulvovaginal dryness
     Dosage: UNK (IT IS PLACED FOR THREE MONTHS)
     Route: 067
  3. ESTRING [Suspect]
     Active Substance: ESTRADIOL
     Indication: Blood oestrogen decreased

REACTIONS (2)
  - Product prescribing error [Unknown]
  - Circumstance or information capable of leading to medication error [Unknown]
